FAERS Safety Report 4915535-2 (Version None)
Quarter: 2006Q1

REPORT INFORMATION
  Report Type: 
  Country: None (occurrence: None)
  Receive Date: 20060217
  Receipt Date: 20060208
  Transmission Date: 20060701
  Serious: Yes (Hospitalization)
  Sender: FDA-Public Use
  Company Number: US-MERCK-0602USA02658

PATIENT
  Age: 65 Year
  Sex: Female
  Weight: 68 kg

DRUGS (13)
  1. VIOXX [Suspect]
     Indication: ARTHRITIS
     Route: 048
     Dates: start: 19990101, end: 20040901
  2. VASOTEC RPD [Concomitant]
     Indication: HYPERTENSION
     Route: 048
     Dates: start: 19990101
  3. LIPITOR [Concomitant]
     Route: 065
     Dates: start: 19990101, end: 20050801
  4. ACCUPRIL [Concomitant]
     Route: 065
  5. AMBIEN [Concomitant]
     Route: 065
  6. XANAX [Concomitant]
     Route: 065
  7. AUGMENTIN '125' [Concomitant]
     Route: 065
  8. CIPRO [Concomitant]
     Route: 065
  9. EVISTA [Concomitant]
     Route: 065
  10. PLAVIX [Concomitant]
     Route: 065
  11. PREVACID [Concomitant]
     Route: 065
  12. TENORMIN [Concomitant]
     Route: 065
  13. ZOCOR [Concomitant]
     Route: 048

REACTIONS (8)
  - ACUTE MYOCARDIAL INFARCTION [None]
  - BLOOD CHOLESTEROL INCREASED [None]
  - CORONARY ARTERY DISEASE [None]
  - DRUG HYPERSENSITIVITY [None]
  - DYSPEPSIA [None]
  - INTERVERTEBRAL DISC PROTRUSION [None]
  - SLEEP DISORDER [None]
  - STOMACH DISCOMFORT [None]
